FAERS Safety Report 15451456 (Version 2)
Quarter: 2018Q4

REPORT INFORMATION
  Report Type: Spontaneous
  Country: US (occurrence: US)
  Receive Date: 20181001
  Receipt Date: 20181008
  Transmission Date: 20190204
  Serious: Yes (Death, Other)
  Sender: FDA-Public Use
  Company Number: US-PFIZER INC-2018392906

PATIENT
  Age: 52 Year
  Sex: Male

DRUGS (8)
  1. MELPHALAN. [Concomitant]
     Active Substance: MELPHALAN
     Indication: POLYCYTHAEMIA VERA
     Dosage: 100 MG/M2, UNK (REDUCED 25% TO 100 MG/M2)
  2. ALEMTUZUMAB [Concomitant]
     Active Substance: ALEMTUZUMAB
     Indication: POLYCYTHAEMIA VERA
  3. TACROLIMUS. [Suspect]
     Active Substance: TACROLIMUS
     Dosage: UNK
  4. FLUDARABINE PHOSPHATE. [Suspect]
     Active Substance: FLUDARABINE PHOSPHATE
     Indication: POLYCYTHAEMIA VERA
  5. TACROLIMUS. [Suspect]
     Active Substance: TACROLIMUS
     Dosage: UNK
  6. FLUDARABINE PHOSPHATE. [Suspect]
     Active Substance: FLUDARABINE PHOSPHATE
     Indication: ACUTE MYELOID LEUKAEMIA
     Dosage: 30 MG/M2, UNK (DOSE NO. 5)
  7. MELPHALAN. [Concomitant]
     Active Substance: MELPHALAN
     Indication: ACUTE MYELOID LEUKAEMIA
     Dosage: UNK
  8. ALEMTUZUMAB [Concomitant]
     Active Substance: ALEMTUZUMAB
     Indication: ACUTE MYELOID LEUKAEMIA
     Dosage: 20 MG, UNK (DOSE NO.5)

REACTIONS (9)
  - Posterior reversible encephalopathy syndrome [Unknown]
  - Lethargy [Unknown]
  - Haemorrhagic stroke [Fatal]
  - Mental status changes [Unknown]
  - Agitation [Unknown]
  - Cerebral haemorrhage [Fatal]
  - Cerebral microangiopathy [Fatal]
  - Neurotoxicity [Fatal]
  - Aphasia [Unknown]
